FAERS Safety Report 5764707-6 (Version None)
Quarter: 2008Q2

REPORT INFORMATION
  Report Type: 
  Country: None (occurrence: None)
  Receive Date: 20080611
  Receipt Date: 20080529
  Transmission Date: 20081010
  Serious: Yes (Hospitalization)
  Sender: FDA-Public Use
  Company Number: GB-ELI_LILLY_AND_COMPANY-GB200802001452

PATIENT
  Sex: Female
  Weight: 97.3 kg

DRUGS (9)
  1. FORTEO [Suspect]
     Indication: OSTEOPOROSIS
     Dosage: 20 UG, DAILY (1/D)
     Route: 058
     Dates: start: 20070918, end: 20071106
  2. WARFARIN SODIUM [Concomitant]
     Dosage: 2 MG, UNKNOWN
     Route: 048
  3. LEVOTHYROXINE SODIUM [Concomitant]
     Dosage: 75 UG, UNKNOWN
     Route: 048
  4. CALCEOS [Concomitant]
     Dosage: UNK, UNKNOWN
     Route: 065
  5. FUROSEMIDE [Concomitant]
     Dosage: UNK, UNKNOWN
     Route: 065
  6. SPIRONOLACTONE [Concomitant]
     Dosage: UNK, UNKNOWN
     Route: 065
  7. SIMVASTATIN [Concomitant]
     Dosage: UNK, UNKNOWN
     Route: 065
  8. NULYTELY [Concomitant]
     Dosage: UNK, UNKNOWN
     Route: 065
  9. SOTALOL HCL [Concomitant]
     Dosage: UNK, UNKNOWN
     Route: 066

REACTIONS (1)
  - PEMPHIGOID [None]
